FAERS Safety Report 6731038-7 (Version None)
Quarter: 2010Q2

REPORT INFORMATION
  Report Type: 
  Country: None (occurrence: None)
  Receive Date: 20100518
  Receipt Date: 20100507
  Transmission Date: 20101027
  Serious: No
  Sender: FDA-Public Use
  Company Number: US-B.I. PHARMACEUTICALS,INC./RIDGEFIELD-2010-BP-05235BP

PATIENT
  Age: 67 Year
  Sex: Male

DRUGS (2)
  1. MIRAPEX [Suspect]
     Indication: PARKINSON'S DISEASE
     Dosage: 0.75 MG
     Route: 048
     Dates: start: 20100505, end: 20100507
  2. AZILECT [Concomitant]
     Indication: PARKINSON'S DISEASE

REACTIONS (2)
  - INSOMNIA [None]
  - TREMOR [None]
